FAERS Safety Report 7751433-7 (Version None)
Quarter: 2011Q3

REPORT INFORMATION
  Report Type: 
  Country: None (occurrence: None)
  Receive Date: 20110914
  Receipt Date: 20110831
  Transmission Date: 20111222
  Serious: Yes (Hospitalization, Other)
  Sender: FDA-Public Use
  Company Number: PHHY2011BR78508

PATIENT
  Sex: Female
  Weight: 89 kg

DRUGS (5)
  1. DIOVAN [Suspect]
     Indication: HYPERTENSION
     Dosage: 1 DF, DAILY
     Route: 048
  2. JANUMET [Concomitant]
     Indication: DIABETES MELLITUS
     Dosage: 1 DF, BID
     Route: 048
  3. FORMOTEROL FUMARATE [Concomitant]
     Indication: BRONCHITIS
     Dosage: 1 DF, BID
  4. ESTREVA [Concomitant]
     Indication: HORMONE REPLACEMENT THERAPY
     Route: 061
  5. AMARYL [Concomitant]
     Indication: DIABETES MELLITUS
     Dosage: 1 DF, DAILY
     Route: 048

REACTIONS (3)
  - PAIN [None]
  - FIBROMYALGIA [None]
  - LARYNGEAL OEDEMA [None]
